FAERS Safety Report 9697184 (Version 1)
Quarter: 2013Q4

REPORT INFORMATION
  Report Type: Spontaneous
  Country: NL (occurrence: NL)
  Receive Date: 20131120
  Receipt Date: 20131120
  Transmission Date: 20140711
  Serious: Yes (Hospitalization)
  Sender: FDA-Public Use
  Company Number: NL-AMGEN-NLDSP2013080793

PATIENT
  Age: 80 Year
  Sex: Female

DRUGS (12)
  1. ARANESP [Suspect]
     Indication: PRODUCT USED FOR UNKNOWN INDICATION
     Dosage: 40 MUG, Q4WK
     Route: 058
  2. AMLODIPINE ACTAVIS [Concomitant]
  3. ATORVASTATIN [Concomitant]
  4. BETAHISTINE [Concomitant]
  5. BISOPROLOL [Concomitant]
  6. CALCI CHEW [Concomitant]
  7. EUTHYROX [Concomitant]
  8. FUROSEMIDE [Concomitant]
  9. MONOCEDOCARD [Concomitant]
  10. NATRIUMRISEDRONAAT SANDOZ WEKELIJKS [Concomitant]
  11. PANADOL                            /00020001/ [Concomitant]
  12. PANTOPRAZOL [Concomitant]

REACTIONS (2)
  - Sensation of heaviness [Unknown]
  - Malaise [Unknown]
